FAERS Safety Report 8838527 (Version 3)
Quarter: 2013Q3

REPORT INFORMATION
  Report Type: Spontaneous
  Country: US (occurrence: US)
  Receive Date: 20121012
  Receipt Date: 20130926
  Transmission Date: 20140515
  Serious: Yes (Hospitalization, Other)
  Sender: FDA-Public Use
  Company Number: US-PFIZER INC-2012253926

PATIENT
  Age: 75 Year
  Sex: Female
  Weight: 54 kg

DRUGS (17)
  1. XALATAN [Suspect]
     Indication: GLAUCOMA
     Dosage: IN BOTH EYES, 1X/DAY
     Route: 047
  2. LYRICA [Suspect]
     Indication: FIBROMYALGIA
     Dosage: 50 MG, 1X/DAY
     Dates: start: 2012
  3. LYRICA [Suspect]
     Dosage: 75 MG, 1X/DAY
  4. LYRICA [Suspect]
     Dosage: 50 MG, 1X/DAY
     Dates: start: 2012
  5. SIMVASTATIN [Suspect]
     Indication: HYPERLIPIDAEMIA
     Dosage: 20 MG, 1X/DAY
  6. SIMVASTATIN [Suspect]
     Indication: HYPERTRIGLYCERIDAEMIA
  7. CORTISONE ACETATE [Suspect]
     Indication: TRIGGER FINGER
     Dosage: UNK
  8. METOPROLOL [Concomitant]
     Indication: BLOOD PRESSURE ABNORMAL
     Dosage: 20 MG, 2X/DAY
  9. METOPROLOL [Concomitant]
     Indication: CARDIAC DISORDER
  10. TEMAZEPAM [Concomitant]
     Indication: SLEEP DISORDER
     Dosage: 30 MG, 1X/DAY AT NIGHT
  11. BABY ASPIRIN [Concomitant]
     Indication: CARDIAC DISORDER
     Dosage: 81 MG, 1X/DAY
  12. COENZYME Q10 [Concomitant]
     Indication: CARDIAC DISORDER
     Dosage: 200 MG, 1X/DAY
  13. FLAX SEED OIL [Concomitant]
     Indication: CARDIAC DISORDER
     Dosage: 1000 MG, 1X/DAY
  14. BIOTIN [Concomitant]
     Indication: ROUTINE HEALTH MAINTENANCE
     Dosage: 5000 UG, 1X/DAY
  15. OMEPRAZOLE [Concomitant]
     Indication: GASTROOESOPHAGEAL REFLUX DISEASE
     Dosage: 20 MG, 1X/DAY
  16. CALCIUM CITRATE/COLECALCIFEROL [Concomitant]
     Indication: TOOTH DISORDER
     Dosage: 500/1000, IU/MG,4X/DAY
  17. CALCIUM CITRATE/COLECALCIFEROL [Concomitant]
     Dosage: 500/1000, IU/MG,2X/DAY

REACTIONS (17)
  - Joint injury [Unknown]
  - Glaucoma [Unknown]
  - Pelvic fracture [Unknown]
  - Trigger finger [Unknown]
  - Fall [Unknown]
  - Joint instability [Unknown]
  - Intraocular pressure increased [Unknown]
  - Pain in extremity [Unknown]
  - Arthralgia [Unknown]
  - Back pain [Unknown]
  - Osteoarthritis [Unknown]
  - Dizziness [Recovered/Resolved]
  - Hangover [Recovered/Resolved]
  - Drug intolerance [Unknown]
  - Myalgia [Unknown]
  - Alopecia [Unknown]
  - Weight increased [Unknown]
